FAERS Safety Report 24863189 (Version 1)
Quarter: 2025Q1

REPORT INFORMATION
  Report Type: Spontaneous
  Country: US (occurrence: US)
  Receive Date: 20250120
  Receipt Date: 20250120
  Transmission Date: 20250409
  Serious: Yes (Hospitalization)
  Sender: SANOFI AVENTIS
  Company Number: US-SA-2025SA015301

PATIENT
  Age: 31 Year
  Sex: Male
  Weight: 56.7 kg

DRUGS (2)
  1. REZUROCK [Suspect]
     Active Substance: BELUMOSUDIL
     Indication: Chronic graft versus host disease
     Dosage: 200 MG, BID
     Route: 048
     Dates: start: 20231211
  2. IMBRUVICA [Concomitant]
     Active Substance: IBRUTINIB
     Indication: Chronic graft versus host disease
     Dosage: 420 MG, QD
     Route: 048
     Dates: start: 202404

REACTIONS (6)
  - Knee arthroplasty [Unknown]
  - Depressed mood [Unknown]
  - Loss of personal independence in daily activities [Unknown]
  - General physical health deterioration [Unknown]
  - Pain [Unknown]
  - Inappropriate schedule of product administration [Unknown]

NARRATIVE: CASE EVENT DATE: 20231211
